FAERS Safety Report 19625382 (Version 1)
Quarter: 2021Q3

REPORT INFORMATION
  Report Type: Spontaneous
  Country: US (occurrence: US)
  Receive Date: 20210728
  Receipt Date: 20210728
  Transmission Date: 20211014
  Serious: Yes (Death, Other)
  Sender: FDA-Public Use
  Company Number: US-AMGEN-USASP2021112150

PATIENT
  Age: 72 Year
  Sex: Male

DRUGS (2)
  1. BEVACIZUMAB. [Suspect]
     Active Substance: BEVACIZUMAB
     Indication: METASTATIC RENAL CELL CARCINOMA
     Dosage: UNK
     Route: 065
  2. ERLOTINIB [Concomitant]
     Active Substance: ERLOTINIB
     Dosage: UNK

REACTIONS (2)
  - Metastatic renal cell carcinoma [Unknown]
  - Death [Fatal]
